FAERS Safety Report 8313101-2 (Version None)
Quarter: 2012Q2

REPORT INFORMATION
  Report Type: 
  Country: None (occurrence: None)
  Receive Date: 20120426
  Receipt Date: 20120419
  Transmission Date: 20120825
  Serious: Yes (Other)
  Sender: FDA-Public Use
  Company Number: US-PFIZER INC-2012009488

PATIENT
  Sex: Female

DRUGS (2)
  1. GEODON [Suspect]
     Indication: SCHIZOPHRENIA, PARANOID TYPE
     Dosage: 20 MG, 2X/DAY
     Route: 048
     Dates: start: 20110930
  2. ZOLOFT [Suspect]
     Indication: SCHIZOPHRENIA, PARANOID TYPE
     Dosage: 50 MG, 1X/DAY
     Route: 048
     Dates: start: 20110930

REACTIONS (3)
  - PARANOIA [None]
  - HALLUCINATION, AUDITORY [None]
  - MENTAL DISORDER [None]
